FAERS Safety Report 20003594 (Version 3)
Quarter: 2021Q4

REPORT INFORMATION
  Report Type: Spontaneous
  Country: IT (occurrence: IT)
  Receive Date: 20211028
  Receipt Date: 20211202
  Transmission Date: 20220303
  Serious: Yes (Death, Life-Threatening, Hospitalization, Other)
  Sender: FDA-Public Use
  Company Number: IT-CELLTRION INC.-2021IT014558

PATIENT

DRUGS (10)
  1. RITUXIMAB [Suspect]
     Active Substance: RITUXIMAB
     Indication: Granulomatosis with polyangiitis
     Dosage: UNK, MAINTENANCE THERAPY, (DOSE FORM: INFUSION, SOLUTION)
     Route: 042
     Dates: start: 201710
  2. RITUXIMAB [Suspect]
     Active Substance: RITUXIMAB
     Indication: Rheumatic disorder
     Dosage: 500 MG, CYCLIC; FIXED SIX MONTH DOSE (DOSAGE FORM: CONCENTRATE FOR SOLUTION FOR INFUSION)
     Route: 042
     Dates: start: 201710, end: 20201109
  3. RITUXIMAB [Suspect]
     Active Substance: RITUXIMAB
     Indication: Vasculitis
     Dosage: MAINTENANCE THERAPY- 500 MG FIXED SIX MONTH DOSE
     Route: 050
     Dates: start: 201710, end: 20201109
  4. RITUXIMAB [Suspect]
     Active Substance: RITUXIMAB
     Dosage: 500 MG, 6 MONTH DOSE (DOSE FORM: INFUSION, SOLUTION)/500 MG, CYCLIC; FIXED SIX MONTH DOSE (PHARMACEU
     Route: 042
     Dates: start: 20201109
  5. RITUXIMAB [Suspect]
     Active Substance: RITUXIMAB
     Dosage: INDUCTION THERAPY
     Route: 050
  6. RITUXIMAB [Suspect]
     Active Substance: RITUXIMAB
     Dosage: UNK, UNKNOWN (DOSAGE FORM: CONCENTRATE FOR SOLUTION FOR INFUSION)
     Route: 042
     Dates: start: 2020, end: 20201109
  7. PIPERACILLIN SODIUM\TAZOBACTAM SODIUM [Suspect]
     Active Substance: PIPERACILLIN SODIUM\TAZOBACTAM SODIUM
     Indication: COVID-19
     Route: 065
  8. CYCLOPHOSPHAMIDE [Suspect]
     Active Substance: CYCLOPHOSPHAMIDE
     Indication: Granulomatosis with polyangiitis
     Dosage: CUMULATIVE DOSE OF 12 G
     Route: 065
     Dates: start: 201609, end: 201709
  9. ENOXAPARIN [Concomitant]
     Active Substance: ENOXAPARIN
     Indication: COVID-19
     Route: 065
  10. PREDNISONE [Concomitant]
     Active Substance: PREDNISONE
     Indication: Granulomatosis with polyangiitis
     Dosage: 2.5 MG, QD
     Route: 065

REACTIONS (8)
  - Multiple organ dysfunction syndrome [Fatal]
  - COVID-19 [Fatal]
  - COVID-19 pneumonia [Fatal]
  - Respiratory failure [Unknown]
  - Hypogammaglobulinaemia [Unknown]
  - Lymphopenia [Unknown]
  - Off label use [Unknown]
  - Drug ineffective for unapproved indication [Unknown]

NARRATIVE: CASE EVENT DATE: 20201224
